FAERS Safety Report 23853399 (Version 1)
Quarter: 2024Q2

REPORT INFORMATION
  Report Type: Spontaneous
  Country: CN (occurrence: CN)
  Receive Date: 20240514
  Receipt Date: 20240514
  Transmission Date: 20240716
  Serious: Yes (Other)
  Sender: FDA-Public Use
  Company Number: CN-SUN PHARMACEUTICAL INDUSTRIES LTD-2024R1-445554

PATIENT
  Age: 53 Year
  Sex: Female

DRUGS (2)
  1. OXALIPLATIN [Suspect]
     Active Substance: OXALIPLATIN
     Indication: Adenocarcinoma of colon
     Dosage: 200 MILLIGRAM, DAILY
     Route: 042
     Dates: start: 20180726, end: 20190217
  2. CAPECITABINE [Suspect]
     Active Substance: CAPECITABINE
     Indication: Adenocarcinoma of colon
     Dosage: 1.5 GRAM, DAILY
     Route: 048
     Dates: start: 20180726, end: 20190217

REACTIONS (3)
  - Therapeutic response decreased [Unknown]
  - Nodular regenerative hyperplasia [Unknown]
  - Disease progression [Unknown]
